FAERS Safety Report 18072679 (Version 1)
Quarter: 2020Q3

REPORT INFORMATION
  Report Type: Spontaneous
  Country: US (occurrence: US)
  Receive Date: 20200727
  Receipt Date: 20200727
  Transmission Date: 20201103
  Serious: Yes (Hospitalization)
  Sender: FDA-Public Use
  Company Number: None

PATIENT
  Age: 59 Year
  Sex: Male
  Weight: 107 kg

DRUGS (1)
  1. METHOCARBAMOL (METHOCARBAMOL 500MG TAB) [Suspect]
     Active Substance: METHOCARBAMOL
     Indication: PAIN
     Route: 048
     Dates: start: 20200611, end: 20200615

REACTIONS (3)
  - Sedation [None]
  - Condition aggravated [None]
  - Hallucination [None]

NARRATIVE: CASE EVENT DATE: 20200615
